FAERS Safety Report 13685039 (Version 2)
Quarter: 2017Q2

REPORT INFORMATION
  Report Type: Spontaneous
  Country: US (occurrence: US)
  Receive Date: 20170623
  Receipt Date: 20170627
  Transmission Date: 20170830
  Serious: Yes (Other)
  Sender: FDA-Public Use
  Company Number: US-BAYER-2017-116665

PATIENT
  Age: 56 Year
  Sex: Male

DRUGS (3)
  1. TICAGRELOR [Suspect]
     Active Substance: TICAGRELOR
  2. ACETYLSALICYLIC ACID({=100 MG) [Suspect]
     Active Substance: ASPIRIN
     Indication: STENT PLACEMENT
     Dosage: UNK
  3. DOPAMINE [Concomitant]
     Active Substance: DOPAMINE\DOPAMINE HYDROCHLORIDE

REACTIONS (15)
  - Groin pain [None]
  - Scrotal pain [None]
  - Scrotal haematoma [None]
  - Penile haematoma [None]
  - Drug administration error [None]
  - Haematoma [None]
  - Hypotension [None]
  - Penile pain [None]
  - Haemodynamic instability [None]
  - Labelled drug-drug interaction medication error [None]
  - Confusional state [None]
  - Tachycardia [None]
  - Tachypnoea [None]
  - Lethargy [None]
  - Scrotal swelling [None]
